FAERS Safety Report 5990605-9 (Version None)
Quarter: 2008Q4

REPORT INFORMATION
  Report Type: 
  Country: None (occurrence: None)
  Receive Date: 20081211
  Receipt Date: 20081210
  Transmission Date: 20090506
  Serious: Yes (Other)
  Sender: FDA-Public Use
  Company Number: A0759734A

PATIENT
  Age: 80 Year
  Sex: Male

DRUGS (5)
  1. VALTREX [Suspect]
     Indication: HERPES ZOSTER
     Dosage: 1G TWICE PER DAY
     Route: 048
     Dates: start: 20081203
  2. HYTRIN [Concomitant]
  3. PROSCAR [Concomitant]
  4. ACCUPRIL [Concomitant]
  5. VITAMINS [Concomitant]

REACTIONS (2)
  - CHOKING [None]
  - RETCHING [None]
